FAERS Safety Report 19654337 (Version 1)
Quarter: 2021Q3

REPORT INFORMATION
  Report Type: Report from Study
  Country: US (occurrence: US)
  Receive Date: 20210803
  Receipt Date: 20210803
  Transmission Date: 20211014
  Serious: Yes (Death, Other)
  Sender: FDA-Public Use
  Company Number: US-GILEAD-2021-0542764

PATIENT
  Age: 43 Year
  Sex: Male

DRUGS (1)
  1. EMTRICITABINE/TENOFOVIR ALAFENAMIDE [Suspect]
     Active Substance: EMTRICITABINE\TENOFOVIR
     Indication: PROPHYLAXIS AGAINST HIV INFECTION
     Dosage: 1 DOSAGE FORM, QD
     Route: 048
     Dates: end: 20210621

REACTIONS (4)
  - Malignant splenic neoplasm [Fatal]
  - Hepatic cancer [Fatal]
  - Bile duct cancer [Fatal]
  - Vaccination complication [Fatal]

NARRATIVE: CASE EVENT DATE: 2021
